FAERS Safety Report 26065116 (Version 1)
Quarter: 2025Q4

REPORT INFORMATION
  Report Type: Spontaneous
  Country: US (occurrence: US)
  Receive Date: 20251119
  Receipt Date: 20251119
  Transmission Date: 20260117
  Serious: No
  Sender: AMICUS THERAPEUTICS
  Company Number: US-AMICUS THERAPEUTICS, INC.-AMI_4128

PATIENT
  Age: 7 Decade
  Sex: Female

DRUGS (2)
  1. POMBILITI [Suspect]
     Active Substance: CIPAGLUCOSIDASE ALFA-ATGA
     Indication: Glycogen storage disease type II
     Dosage: UNK
     Route: 042
  2. OPFOLDA [Suspect]
     Active Substance: MIGLUSTAT
     Indication: Glycogen storage disease type II
     Dosage: 4 OPFOLDA PILLS
     Route: 048

REACTIONS (1)
  - Product use complaint [Not Recovered/Not Resolved]
